FAERS Safety Report 7069858-4 (Version None)
Quarter: 2010Q4

REPORT INFORMATION
  Report Type: 
  Country: None (occurrence: None)
  Receive Date: 20101028
  Receipt Date: 20100611
  Transmission Date: 20110411
  Serious: No
  Sender: FDA-Public Use
  Company Number: US-WYE-H15759310

PATIENT
  Age: 29 Year
  Sex: Female
  Weight: 71.28 kg

DRUGS (2)
  1. ADVIL COLD AND SINUS [Suspect]
     Indication: SINUS CONGESTION
     Route: 048
     Dates: start: 20100528, end: 20100609
  2. ADVAIR DISKUS 100/50 [Concomitant]

REACTIONS (1)
  - DRUG INEFFECTIVE [None]
